FAERS Safety Report 4905783-X (Version None)
Quarter: 2006Q1

REPORT INFORMATION
  Report Type: 
  Country: None (occurrence: None)
  Receive Date: 20060208
  Receipt Date: 20051222
  Transmission Date: 20060701
  Serious: Yes (Hospitalization, Disabling, Other)
  Sender: FDA-Public Use
  Company Number: US-MERCK-0512USA03625

PATIENT
  Age: 58 Year
  Sex: Male
  Weight: 102 kg

DRUGS (15)
  1. VIOXX [Suspect]
     Indication: MONARTHRITIS
     Route: 048
     Dates: start: 19990101, end: 19991001
  2. VIOXX [Suspect]
     Route: 048
     Dates: start: 20010101, end: 20040901
  3. TAGAMET [Concomitant]
     Route: 065
  4. CARDURA [Concomitant]
     Route: 065
  5. ASCORBIC ACID [Concomitant]
     Route: 065
  6. VITAMIN E [Concomitant]
     Route: 065
  7. PLAVIX [Concomitant]
     Route: 065
  8. SMZ-TMP [Concomitant]
     Route: 065
  9. NALEX-A [Concomitant]
     Route: 065
  10. DOXYCYCLINE [Concomitant]
     Route: 065
  11. DOXAZOSIN MESYLATE [Concomitant]
     Route: 065
  12. LISINOPRIL [Concomitant]
     Route: 065
  13. OSTEO-BI-FLEX [Concomitant]
     Route: 065
  14. GARLIC [Concomitant]
     Route: 065
  15. ZESTRIL [Concomitant]
     Route: 065

REACTIONS (20)
  - ACUTE PRERENAL FAILURE [None]
  - AZOTAEMIA [None]
  - CARDIOMEGALY [None]
  - CEREBROVASCULAR ACCIDENT [None]
  - COGNITIVE DISORDER [None]
  - CONFUSIONAL STATE [None]
  - DELIRIUM [None]
  - GASTROOESOPHAGEAL REFLUX DISEASE [None]
  - HAEMATOCRIT DECREASED [None]
  - HAEMOGLOBIN DECREASED [None]
  - HYPERLIPIDAEMIA [None]
  - HYPERTENSION [None]
  - HYPOVENTILATION [None]
  - KNEE ARTHROPLASTY [None]
  - LUNG INFILTRATION [None]
  - MYOCARDIAL INFARCTION [None]
  - OXYGEN SATURATION DECREASED [None]
  - PLATELET COUNT DECREASED [None]
  - PNEUMONIA ASPIRATION [None]
  - SLEEP APNOEA SYNDROME [None]
